FAERS Safety Report 14800914 (Version 4)
Quarter: 2018Q2

REPORT INFORMATION
  Report Type: Report from Study
  Country: JP (occurrence: JP)
  Receive Date: 20180424
  Receipt Date: 20180607
  Transmission Date: 20180711
  Serious: Yes (Death)
  Sender: FDA-Public Use
  Company Number: JP-COLLEGIUM PHARMACEUTICAL, INC.-JP-2018DEP000906

PATIENT
  Age: 80 Year
  Sex: Male
  Weight: 64.2 kg

DRUGS (5)
  1. CARBOPLATIN. [Suspect]
     Active Substance: CARBOPLATIN
     Indication: GASTRIC CANCER
     Dosage: 196.4 MG, QD
     Dates: start: 20171114
  2. ETOPOSIDE. [Suspect]
     Active Substance: ETOPOSIDE
     Indication: GASTRIC CANCER
     Dosage: 80 MG, QD
     Dates: start: 20171114
  3. CALONAL [Concomitant]
     Active Substance: ACETAMINOPHEN
     Indication: CANCER PAIN
     Dosage: UNK
     Dates: start: 20171108, end: 20171123
  4. TAPENTADOL HYDROCHLORIDE [Suspect]
     Active Substance: TAPENTADOL HYDROCHLORIDE
     Indication: CANCER PAIN
     Dosage: 25 MG, QD
     Route: 048
     Dates: start: 20171117, end: 20171123
  5. OXINORM                            /00045603/ [Concomitant]
     Active Substance: OXYCODONE HYDROCHLORIDE
     Indication: CANCER PAIN
     Dosage: UNK
     Dates: start: 20171119, end: 20171120

REACTIONS (4)
  - Malignant neoplasm progression [Fatal]
  - Disseminated intravascular coagulation [Fatal]
  - Hepatic function abnormal [Fatal]
  - Bone marrow failure [Fatal]

NARRATIVE: CASE EVENT DATE: 20171108
